FAERS Safety Report 19482873 (Version 2)
Quarter: 2021Q3

REPORT INFORMATION
  Report Type: Spontaneous
  Country: SI (occurrence: SI)
  Receive Date: 20210701
  Receipt Date: 20210726
  Transmission Date: 20211014
  Serious: Yes (Hospitalization)
  Sender: FDA-Public Use
  Company Number: SI-OTSUKA-2021_022195

PATIENT
  Sex: Male

DRUGS (1)
  1. ABILIFY MAINTENA [Suspect]
     Active Substance: ARIPIPRAZOLE
     Indication: PRODUCT USED FOR UNKNOWN INDICATION
     Dosage: 400 MG, QM
     Route: 065
     Dates: start: 2019

REACTIONS (5)
  - Fatigue [Unknown]
  - Injury [Unknown]
  - Aggression [Unknown]
  - Insomnia [Unknown]
  - Psychotic symptom [Unknown]
